FAERS Safety Report 6715669-6 (Version None)
Quarter: 2010Q2

REPORT INFORMATION
  Report Type: 
  Country: None (occurrence: None)
  Receive Date: 20100507
  Receipt Date: 20090421
  Transmission Date: 20101027
  Serious: No
  Sender: FDA-Public Use
  Company Number: A0779941A

PATIENT
  Age: 33 Year
  Sex: Female

DRUGS (10)
  1. DYNACIRC CR [Suspect]
     Indication: HYPERTENSION
     Dosage: 5MG PER DAY
     Route: 048
     Dates: start: 20090408
  2. VITAMIN E [Concomitant]
  3. VITAMIN C [Concomitant]
  4. ECHINACEA [Concomitant]
  5. FISH OIL [Concomitant]
  6. VITAMIN D [Concomitant]
  7. ZINC [Concomitant]
  8. MSM [Concomitant]
  9. CHONDROITIN [Concomitant]
  10. CORAL CALCIUM [Concomitant]

REACTIONS (1)
  - BLOOD PRESSURE INCREASED [None]
